FAERS Safety Report 8909312 (Version 9)
Quarter: 2014Q3

REPORT INFORMATION
  Report Type: Spontaneous
  Country: US (occurrence: US)
  Receive Date: 20121115
  Receipt Date: 20140725
  Transmission Date: 20150326
  Serious: Yes (Other)
  Sender: FDA-Public Use
  Company Number: US-VERTEX PHARMACEUTICAL INC.-2012-024486

PATIENT
  Age: 59 Year
  Sex: Female
  Weight: 62.13 kg

DRUGS (7)
  1. PEGASYS [Suspect]
     Active Substance: PEGINTERFERON ALFA-2A
     Indication: PRODUCT USED FOR UNKNOWN INDICATION
     Dosage: UNK
     Route: 065
  2. RIBASPHERE RIBAPAK [Suspect]
     Active Substance: RIBAVIRIN
     Indication: CHRONIC HEPATITIS C
     Dosage: UNK
     Route: 065
     Dates: start: 20140324, end: 20140324
  3. INCIVEK [Suspect]
     Active Substance: TELAPREVIR
     Indication: HEPATITIS C
     Dosage: 750 MG, TID
     Route: 048
     Dates: start: 20121105, end: 20121212
  4. RIBASPHERE [Suspect]
     Active Substance: RIBAVIRIN
     Dosage: 400 MG, QD
     Route: 048
  5. PEGINTRON [Suspect]
     Active Substance: PEGINTERFERON ALFA-2B
     Indication: HEPATITIS C
     Dosage: 180 ?G, QW
     Route: 058
     Dates: start: 20121105
  6. RIBASPHERE [Suspect]
     Active Substance: RIBAVIRIN
     Indication: HEPATITIS C
     Dosage: 400 MG, BID
     Route: 048
     Dates: start: 20121105
  7. SOVALDI [Suspect]
     Active Substance: SOFOSBUVIR
     Indication: CHRONIC HEPATITIS C
     Dosage: 400 MG, UNK
     Route: 048
     Dates: start: 20140324, end: 20140324

REACTIONS (20)
  - Chills [Recovered/Resolved]
  - Pruritus generalised [Recovered/Resolved]
  - Weight increased [Not Recovered/Not Resolved]
  - Burning sensation [Recovered/Resolved]
  - Anal pruritus [Recovered/Resolved]
  - Eye swelling [Recovered/Resolved]
  - Influenza like illness [Not Recovered/Not Resolved]
  - Oedema [Recovered/Resolved]
  - Platelet count decreased [Recovered/Resolved]
  - Pain [Not Recovered/Not Resolved]
  - White blood cell count decreased [Recovered/Resolved]
  - Fatigue [Not Recovered/Not Resolved]
  - Swelling face [Recovered/Resolved]
  - Rash generalised [Recovered/Resolved]
  - Red blood cell count decreased [Recovered/Resolved]
  - Drug hypersensitivity [Recovered/Resolved]
  - Pyrexia [Recovered/Resolved]
  - Erythema [Recovered/Resolved]
  - Cough [Recovering/Resolving]
  - Peripheral swelling [Not Recovered/Not Resolved]

NARRATIVE: CASE EVENT DATE: 201211
